FAERS Safety Report 12439917 (Version 36)
Quarter: 2022Q2

REPORT INFORMATION
  Report Type: Report from Study
  Country: CA (occurrence: CA)
  Receive Date: 20160606
  Receipt Date: 20220407
  Transmission Date: 20220721
  Serious: Yes (Hospitalization, Other)
  Sender: FDA-Public Use
  Company Number: PHHY2015CA029101

PATIENT
  Age: 58 Year
  Sex: Male

DRUGS (8)
  1. SANDOSTATIN LAR DEPOT [Suspect]
     Active Substance: OCTREOTIDE ACETATE
     Indication: Neuroendocrine tumour
     Dosage: 30 MG, Q4W (EVERY 4 WEEKS)
     Route: 030
     Dates: start: 20150306
  2. SANDOSTATIN LAR DEPOT [Suspect]
     Active Substance: OCTREOTIDE ACETATE
     Dosage: UNK
     Route: 030
     Dates: start: 20170323
  3. SANDOSTATIN LAR DEPOT [Suspect]
     Active Substance: OCTREOTIDE ACETATE
     Dosage: 30 MG, Q4W
     Route: 030
  4. SANDOSTATIN [Suspect]
     Active Substance: OCTREOTIDE ACETATE
     Indication: Neuroendocrine tumour
     Dosage: 50 MCG (TEST DOSE ONCE)
     Route: 058
     Dates: start: 20150226, end: 20150226
  5. SANDOSTATIN [Suspect]
     Active Substance: OCTREOTIDE ACETATE
  6. SANDOSTATIN [Suspect]
     Active Substance: OCTREOTIDE ACETATE
  7. CODEINE [Concomitant]
     Active Substance: CODEINE
     Indication: Product used for unknown indication
     Route: 065
  8. ASPARTAME [Concomitant]
     Active Substance: ASPARTAME
     Indication: Product used for unknown indication
     Route: 065

REACTIONS (39)
  - Dysuria [Unknown]
  - Procedural haemorrhage [Recovered/Resolved]
  - Incisional hernia [Unknown]
  - Intestinal obstruction [Unknown]
  - Gastrointestinal haemorrhage [Unknown]
  - Renal impairment [Unknown]
  - Gastrointestinal haemorrhage [Recovered/Resolved]
  - Diabetes mellitus [Unknown]
  - Thrombosis [Unknown]
  - Internal haemorrhage [Unknown]
  - Metastases to lymph nodes [Unknown]
  - Metastases to liver [Unknown]
  - Ascites [Unknown]
  - Body temperature decreased [Unknown]
  - Gout [Recovering/Resolving]
  - Myalgia [Unknown]
  - Weight increased [Unknown]
  - Heart rate increased [Unknown]
  - Hypotension [Unknown]
  - Oropharyngeal pain [Recovering/Resolving]
  - Upper respiratory tract infection [Recovering/Resolving]
  - Malaise [Unknown]
  - Vision blurred [Unknown]
  - Haemoglobin decreased [Unknown]
  - Pruritus [Recovered/Resolved]
  - Dyspepsia [Unknown]
  - Faeces discoloured [Recovered/Resolved]
  - Weight decreased [Unknown]
  - Blood pressure increased [Unknown]
  - Differential white blood cell count abnormal [Unknown]
  - Faeces discoloured [Not Recovered/Not Resolved]
  - Lethargy [Unknown]
  - Nausea [Unknown]
  - Fatigue [Recovering/Resolving]
  - Platelet count decreased [Unknown]
  - Blood glucose decreased [Unknown]
  - Diarrhoea [Not Recovered/Not Resolved]
  - Drug hypersensitivity [Unknown]
  - Needle issue [Unknown]

NARRATIVE: CASE EVENT DATE: 20150301
